FAERS Safety Report 15484516 (Version 2)
Quarter: 2018Q4

REPORT INFORMATION
  Report Type: Spontaneous
  Country: US (occurrence: US)
  Receive Date: 20181010
  Receipt Date: 20181017
  Transmission Date: 20190205
  Serious: No
  Sender: FDA-Public Use
  Company Number: PHEH2018US042035

PATIENT
  Sex: Female

DRUGS (1)
  1. GILENYA [Suspect]
     Active Substance: FINGOLIMOD HYDROCHLORIDE
     Indication: MULTIPLE SCLEROSIS
     Dosage: 0.5 MG, QD
     Route: 048
     Dates: start: 20180417

REACTIONS (6)
  - Skin abrasion [Unknown]
  - Memory impairment [Not Recovered/Not Resolved]
  - Depression [Unknown]
  - Contusion [Unknown]
  - Gait disturbance [Unknown]
  - Fall [Unknown]
